FAERS Safety Report 13595952 (Version 1)
Quarter: 2017Q2

REPORT INFORMATION
  Report Type: Spontaneous
  Country: US (occurrence: US)
  Receive Date: 20170531
  Receipt Date: 20170531
  Transmission Date: 20170830
  Serious: No
  Sender: FDA-Public Use
  Company Number: US-JNJFOC-20170516183

PATIENT

DRUGS (1)
  1. TYLENOL [Suspect]
     Active Substance: ACETAMINOPHEN
     Indication: TINEA PEDIS
     Route: 061

REACTIONS (2)
  - Incorrect route of drug administration [Unknown]
  - Drug ineffective for unapproved indication [Unknown]
